FAERS Safety Report 18577546 (Version 3)
Quarter: 2021Q2

REPORT INFORMATION
  Report Type: Spontaneous
  Country: CN (occurrence: CN)
  Receive Date: 20201204
  Receipt Date: 20210514
  Transmission Date: 20210717
  Serious: Yes (Death, Other)
  Sender: FDA-Public Use
  Company Number: CN-JNJFOC-20201150763

PATIENT

DRUGS (1)
  1. MOTRIN INFANTS [Suspect]
     Active Substance: IBUPROFEN
     Indication: PATENT DUCTUS ARTERIOSUS
     Dosage: (STRENGTH: 15ML: 0.6G
     Route: 048

REACTIONS (15)
  - Hyperbilirubinaemia [Fatal]
  - Intraventricular haemorrhage [Fatal]
  - Retinopathy of prematurity [Fatal]
  - Sepsis [Fatal]
  - Lung disorder [Fatal]
  - Renal impairment [Fatal]
  - Product use in unapproved indication [Fatal]
  - Platelet count decreased [Fatal]
  - Hepatic function abnormal [Fatal]
  - Pulmonary haemorrhage [Fatal]
  - Off label use [Fatal]
  - Anaemia [Fatal]
  - Necrotising colitis [Fatal]
  - Treatment failure [Fatal]
  - Gastrointestinal haemorrhage [Fatal]
